FAERS Safety Report 10483018 (Version 6)
Quarter: 2014Q4

REPORT INFORMATION
  Report Type: Report from Study
  Country: DE (occurrence: DE)
  Receive Date: 20140929
  Receipt Date: 20141224
  Transmission Date: 20150528
  Serious: Yes (Hospitalization)
  Sender: FDA-Public Use
  Company Number: DE-ROCHE-1465946

PATIENT
  Age: 53 Year
  Sex: Male
  Weight: 80.2 kg

DRUGS (5)
  1. FLUOROURACIL. [Suspect]
     Active Substance: FLUOROURACIL
     Indication: COLORECTAL CANCER METASTATIC
     Dosage: DATE OF LAST DOSE PRIOR TO SAE 10/SEP/2014 AT 00.35?LAST DOSE PRIOR TO SAE 3200 MG/M2
     Route: 042
     Dates: start: 20140910, end: 20141008
  2. IRINOTECAN [Suspect]
     Active Substance: IRINOTECAN
     Indication: COLORECTAL CANCER METASTATIC
     Dosage: DATE OF LAST DOSE PRIOR TO SAE: 09/SEP/2014 AT 19:40.
     Route: 042
     Dates: start: 20140909, end: 20141008
  3. FOLINIC ACID [Suspect]
     Active Substance: LEUCOVORIN
     Indication: COLORECTAL CANCER METASTATIC
     Dosage: DATE OF LAST DOSE PRIOR TO SAE: 09/SEP/2014 AT 19:46?LAST DOSE PRIOR TO SAE 200 MG/M2
     Route: 042
     Dates: start: 20140909, end: 20141008
  4. OXALIPLATIN. [Suspect]
     Active Substance: OXALIPLATIN
     Indication: COLORECTAL CANCER METASTATIC
     Dosage: DATE OF LAST DOSE PRIOR TO SAE 09/SEP/2014 AT 16:20
     Route: 042
     Dates: start: 20140909, end: 20141008
  5. BEVACIZUMAB [Suspect]
     Active Substance: BEVACIZUMAB
     Indication: COLORECTAL CANCER METASTATIC
     Dosage: DATE OF MOST RECENT DOSE PRIOR TO SAE: 09/SEP/2014 AT 14:55?LAST DOSE ADMINISTERED: 5 MG/KG
     Route: 042
     Dates: start: 20140909, end: 20141008

REACTIONS (1)
  - General physical health deterioration [Not Recovered/Not Resolved]

NARRATIVE: CASE EVENT DATE: 20140922
